FAERS Safety Report 7887843-7 (Version None)
Quarter: 2011Q4

REPORT INFORMATION
  Report Type: 
  Country: None (occurrence: None)
  Receive Date: 20111102
  Receipt Date: 20111102
  Transmission Date: 20120403
  Serious: No
  Sender: FDA-Public Use
  Company Number: None

PATIENT
  Age: 63 Year
  Sex: Female

DRUGS (8)
  1. PROAIR HFA [Concomitant]
  2. METOPROLOL TARTRATE [Concomitant]
  3. TACROLIMUS [Concomitant]
  4. PRILOSEC [Concomitant]
  5. REVLIMID [Suspect]
     Indication: MULTIPLE MYELOMA
     Dosage: 10MG QD21D/28D ORALLY
     Route: 048
  6. FOSAMAX [Concomitant]
  7. MYCOPHENOLATE MOFETIL (CELLCEPT) [Concomitant]
  8. REVLIMID [Concomitant]

REACTIONS (1)
  - NEUTROPENIA [None]
